FAERS Safety Report 7649374-9 (Version None)
Quarter: 2011Q3

REPORT INFORMATION
  Report Type: 
  Country: None (occurrence: None)
  Receive Date: 20110802
  Receipt Date: 20110716
  Transmission Date: 20111222
  Serious: No
  Sender: FDA-Public Use
  Company Number: US-B.I. PHARMACEUTICALS,INC./RIDGEFIELD-2011-BP-17875BP

PATIENT
  Age: 50 Year
  Sex: Male

DRUGS (3)
  1. MONOPRIL [Concomitant]
  2. VIRAMUNE [Suspect]
     Indication: HIV INFECTION
     Route: 048
     Dates: start: 20020401, end: 20070101
  3. ANDROGEL [Concomitant]

REACTIONS (2)
  - HYPERSENSITIVITY [None]
  - RENAL DISORDER [None]
